FAERS Safety Report 20176476 (Version 1)
Quarter: 2021Q4

REPORT INFORMATION
  Report Type: Spontaneous
  Country: US (occurrence: US)
  Receive Date: 20211213
  Receipt Date: 20211213
  Transmission Date: 20220303
  Serious: Yes (Other)
  Sender: FDA-Public Use
  Company Number: US-PFIZER INC-202101690060

PATIENT
  Age: 66 Year
  Sex: Male

DRUGS (1)
  1. SIROLIMUS [Suspect]
     Active Substance: SIROLIMUS
     Dosage: 1 MG, 2X/DAY, (TAKE 2 TABLETS BY MOUTH DAILY)
     Route: 048

REACTIONS (1)
  - Hernia [Unknown]
